FAERS Safety Report 5176619-X (Version None)
Quarter: 2006Q4

REPORT INFORMATION
  Report Type: 
  Country: None (occurrence: None)
  Receive Date: 20061207
  Receipt Date: 20061128
  Transmission Date: 20070319
  Serious: Yes (Other)
  Sender: FDA-Public Use
  Company Number: 2006133101

PATIENT
  Age: 37 Year
  Sex: Female

DRUGS (3)
  1. PROVERA [Suspect]
     Indication: MENSTRUATION IRREGULAR
     Dosage: 10 MG (10 MG, EVERY DAY), ORAL
     Route: 048
     Dates: start: 20061027, end: 20061101
  2. OMEPRAZOLE [Concomitant]
  3. ANALGESICS [Concomitant]

REACTIONS (6)
  - ABDOMINAL PAIN [None]
  - DYSPHAGIA [None]
  - HYPERSENSITIVITY [None]
  - MENORRHAGIA [None]
  - PHARYNGOLARYNGEAL PAIN [None]
  - THROAT TIGHTNESS [None]
